FAERS Safety Report 14570931 (Version 1)
Quarter: 2018Q1

REPORT INFORMATION
  Report Type: Report from Study
  Country: US (occurrence: US)
  Receive Date: 20180226
  Receipt Date: 20180226
  Transmission Date: 20180509
  Serious: No
  Sender: FDA-Public Use
  Company Number: PHHY2015US123505

PATIENT
  Age: 44 Year
  Sex: Male

DRUGS (1)
  1. GILENYA [Suspect]
     Active Substance: FINGOLIMOD HYDROCHLORIDE
     Indication: MULTIPLE SCLEROSIS
     Dosage: UNK, QD
     Route: 048

REACTIONS (5)
  - Pruritus [Unknown]
  - Melanocytic naevus [Unknown]
  - Pseudofolliculitis barbae [Unknown]
  - Seborrhoeic keratosis [Unknown]
  - Insomnia [Unknown]

NARRATIVE: CASE EVENT DATE: 20150626
